FAERS Safety Report 9744023 (Version 2)
Quarter: 2013Q4

REPORT INFORMATION
  Report Type: Spontaneous
  Country: US (occurrence: US)
  Receive Date: 20131210
  Receipt Date: 20131220
  Transmission Date: 20140711
  Serious: Yes (Hospitalization)
  Sender: FDA-Public Use
  Company Number: US-GLAXOSMITHKLINE-A1052479A

PATIENT
  Age: 60 Year
  Sex: Female

DRUGS (4)
  1. SUMATRIPTAN SUCCINATE [Suspect]
     Indication: MIGRAINE
     Dosage: 50MG AS REQUIRED
     Route: 048
  2. IMITREX [Suspect]
     Indication: MIGRAINE
  3. IMITREX [Suspect]
     Indication: MIGRAINE
     Dosage: 50MG AS REQUIRED
     Route: 048
  4. EXCEDRIN [Concomitant]

REACTIONS (5)
  - Investigation [Unknown]
  - Overdose [Unknown]
  - Drug prescribing error [Unknown]
  - Drug ineffective [Not Recovered/Not Resolved]
  - Product substitution issue [None]
